FAERS Safety Report 13433865 (Version 2)
Quarter: 2017Q2

REPORT INFORMATION
  Report Type: Report from Study
  Country: US (occurrence: US)
  Receive Date: 20170412
  Receipt Date: 20170420
  Transmission Date: 20170830
  Serious: Yes (Death)
  Sender: FDA-Public Use
  Company Number: US-EXELIXIS-CABO-17008849

PATIENT
  Sex: Male

DRUGS (22)
  1. NEXIUM [Concomitant]
     Active Substance: ESOMEPRAZOLE MAGNESIUM
  2. LEVEMIR [Concomitant]
     Active Substance: INSULIN DETEMIR
  3. HUMULIN NOS [Concomitant]
     Active Substance: INSULIN HUMAN
  4. ZOFRAN [Concomitant]
     Active Substance: ONDANSETRON HYDROCHLORIDE
  5. ZOLPIDEM [Concomitant]
     Active Substance: ZOLPIDEM\ZOLPIDEM TARTRATE
  6. NORCO [Concomitant]
     Active Substance: ACETAMINOPHEN\HYDROCODONE BITARTRATE
  7. PROVENTIL [Concomitant]
     Active Substance: ALBUTEROL
  8. LOVENOX [Concomitant]
     Active Substance: ENOXAPARIN SODIUM
  9. COZAAR [Concomitant]
     Active Substance: LOSARTAN POTASSIUM
  10. HYZAAR [Concomitant]
     Active Substance: HYDROCHLOROTHIAZIDE\LOSARTAN POTASSIUM
  11. LOPRESSOR [Concomitant]
     Active Substance: METOPROLOL TARTRATE
  12. LIDOCAINE. [Concomitant]
     Active Substance: LIDOCAINE
  13. LANTUS [Concomitant]
     Active Substance: INSULIN GLARGINE
  14. LEVAQUIN [Concomitant]
     Active Substance: LEVOFLOXACIN
  15. GLUCAGON. [Concomitant]
     Active Substance: GLUCAGON
  16. HUMALOG [Concomitant]
     Active Substance: INSULIN LISPRO
  17. COMETRIQ [Suspect]
     Active Substance: CABOZANTINIB S-MALATE
     Indication: OESOPHAGEAL CARCINOMA
     Dosage: 60 MG, QD
     Route: 048
     Dates: start: 201701, end: 20170223
  18. DICYCLOMINE [Concomitant]
     Active Substance: DICYCLOMINE HYDROCHLORIDE
  19. GLUTOSE [Concomitant]
     Active Substance: DEXTROSE
  20. PROTONIX [Concomitant]
     Active Substance: PANTOPRAZOLE SODIUM
  21. SODIUM CHLORIDE W/WATER [Concomitant]
  22. SIMVASTATIN. [Concomitant]
     Active Substance: SIMVASTATIN

REACTIONS (2)
  - Off label use [Unknown]
  - Malignant neoplasm progression [Fatal]

NARRATIVE: CASE EVENT DATE: 2017
